FAERS Safety Report 7765769-7 (Version None)
Quarter: 2011Q3

REPORT INFORMATION
  Report Type: 
  Country: None (occurrence: None)
  Receive Date: 20110921
  Receipt Date: 20110914
  Transmission Date: 20111222
  Serious: Yes (Other)
  Sender: FDA-Public Use
  Company Number: IT-ABBOTT-11P-083-0855855-00

PATIENT
  Sex: Male

DRUGS (1)
  1. CLARITHROMYCIN [Suspect]
     Indication: PRODUCT USED FOR UNKNOWN INDICATION
     Dosage: 1 UNIT TOTAL
     Route: 048
     Dates: start: 20110712, end: 20110712

REACTIONS (2)
  - CONTUSION [None]
  - SWELLING FACE [None]
